FAERS Safety Report 4496573-3 (Version None)
Quarter: 2004Q3

REPORT INFORMATION
  Report Type: 
  Country: None (occurrence: None)
  Receive Date: 20040923
  Receipt Date: 20040510
  Transmission Date: 20050211
  Serious: Yes (Hospitalization, Other)
  Sender: FDA-Public Use
  Company Number: 2004031559

PATIENT
  Age: 8 Year
  Sex: Female
  Weight: 26.7622 kg

DRUGS (4)
  1. ZYRTEC [Suspect]
     Indication: HYPERSENSITIVITY
     Dosage: 1 TSP (NIGHTLY), ORAL
     Route: 048
     Dates: start: 20020901
  2. MONTELUKAST SODIUM (MONTELUKAST SODIUM) [Concomitant]
  3. FLUTICASONE PROPIONATE [Concomitant]
  4. BUDESONIDE (BUDESONIDE) [Concomitant]

REACTIONS (2)
  - BLOOD GLUCOSE FLUCTUATION [None]
  - DIABETES MELLITUS [None]
